FAERS Safety Report 15474195 (Version 2)
Quarter: 2018Q4

REPORT INFORMATION
  Report Type: Spontaneous
  Country: US (occurrence: US)
  Receive Date: 20181008
  Receipt Date: 20181227
  Transmission Date: 20190205
  Serious: Yes (Other)
  Sender: FDA-Public Use
  Company Number: US-SA-2018SA275874

PATIENT
  Age: 58 Year
  Sex: Female
  Weight: 130.18 kg

DRUGS (11)
  1. SIMETHICONE (DIMETHICONE) [Concomitant]
     Active Substance: DIMETHICONE
  2. ACETAMINOPHEN. [Concomitant]
     Active Substance: ACETAMINOPHEN
  3. IBUPROFEN. [Concomitant]
     Active Substance: IBUPROFEN
  4. NEOSAR [Concomitant]
     Active Substance: CYCLOPHOSPHAMIDE
  5. LISINOPRIL. [Concomitant]
     Active Substance: LISINOPRIL
  6. TAXOTERE [Suspect]
     Active Substance: DOCETAXEL
     Indication: BREAST CANCER
     Dosage: 152 MG, Q3W
     Route: 042
     Dates: start: 20151110, end: 20151110
  7. CARVEDILOL. [Concomitant]
     Active Substance: CARVEDILOL
  8. METFORMIN [Concomitant]
     Active Substance: METFORMIN HYDROCHLORIDE
  9. ZOFRAN [Concomitant]
     Active Substance: ONDANSETRON HYDROCHLORIDE
  10. ASPIRIN (E.C.) [Concomitant]
     Active Substance: ASPIRIN
  11. TAXOTERE [Suspect]
     Active Substance: DOCETAXEL
     Dosage: 152 UNK, UNK
     Route: 042
     Dates: start: 20160301, end: 20160301

REACTIONS (1)
  - Alopecia [Recovering/Resolving]

NARRATIVE: CASE EVENT DATE: 20160101
